FAERS Safety Report 17849652 (Version 1)
Quarter: 2020Q2

REPORT INFORMATION
  Report Type: Spontaneous
  Country: US (occurrence: US)
  Receive Date: 20200601
  Receipt Date: 20200601
  Transmission Date: 20200714
  Serious: No
  Sender: FDA-Public Use
  Company Number: None

PATIENT
  Sex: Female

DRUGS (1)
  1. COSENTYX [Suspect]
     Active Substance: SECUKINUMAB
     Indication: PSORIATIC ARTHROPATHY
     Dosage: FREQUENCY EVERY 4 WEEKS
     Route: 058
     Dates: start: 20200220, end: 20200420

REACTIONS (2)
  - Condition aggravated [None]
  - Therapy cessation [None]
